FAERS Safety Report 4619021-9 (Version None)
Quarter: 2005Q1

REPORT INFORMATION
  Report Type: 
  Country: None (occurrence: None)
  Receive Date: 20050317
  Receipt Date: 20050317
  Transmission Date: 20050727
  Serious: Yes (Life-Threatening, Hospitalization)
  Sender: FDA-Public Use
  Company Number: None

PATIENT
  Age: 53 Year
  Sex: Male
  Weight: 77.1115 kg

DRUGS (3)
  1. LIPITOR [Suspect]
     Indication: ARTERIAL OCCLUSIVE DISEASE
     Dosage: ONCE   DAY   ORAL
     Route: 048
     Dates: start: 20010911, end: 20030524
  2. LIPITOR [Suspect]
     Indication: ARTERIAL STENT INSERTION
     Dosage: ONCE   DAY   ORAL
     Route: 048
     Dates: start: 20010911, end: 20030524
  3. LIPITOR [Suspect]
     Indication: EUPHORIC MOOD
     Dosage: ONCE   DAY   ORAL
     Route: 048
     Dates: start: 20010911, end: 20030524

REACTIONS (2)
  - BLOOD CREATINE PHOSPHOKINASE INCREASED [None]
  - MUSCLE DISORDER [None]
